FAERS Safety Report 23343995 (Version 1)
Quarter: 2023Q4

REPORT INFORMATION
  Report Type: Spontaneous
  Country: NO (occurrence: NO)
  Receive Date: 20231227
  Receipt Date: 20231227
  Transmission Date: 20240110
  Serious: Yes (Death, Hospitalization, Other)
  Sender: FDA-Public Use
  Company Number: None

PATIENT
  Age: 68 Year
  Sex: Male

DRUGS (10)
  1. OPDIVO [Suspect]
     Active Substance: NIVOLUMAB
     Indication: Neoadjuvant therapy
     Route: 042
     Dates: end: 20230817
  2. OPDIVO [Suspect]
     Active Substance: NIVOLUMAB
     Indication: Linitis plastica
  3. FLUOROURACIL [Concomitant]
     Active Substance: FLUOROURACIL
     Indication: Neoadjuvant therapy
  4. FLUOROURACIL [Concomitant]
     Active Substance: FLUOROURACIL
     Indication: Linitis plastica
  5. OXALIPLATIN [Concomitant]
     Active Substance: OXALIPLATIN
     Indication: Linitis plastica
  6. OXALIPLATIN [Concomitant]
     Active Substance: OXALIPLATIN
     Indication: Neoadjuvant therapy
  7. DOCETAXEL [Concomitant]
     Active Substance: DOCETAXEL\DOCETAXEL ANHYDROUS
     Indication: Neoadjuvant therapy
  8. DOCETAXEL [Concomitant]
     Active Substance: DOCETAXEL\DOCETAXEL ANHYDROUS
     Indication: Linitis plastica
  9. LEUCOVORIN CALCIUM [Concomitant]
     Active Substance: LEUCOVORIN CALCIUM
     Indication: Neoadjuvant therapy
  10. LEUCOVORIN CALCIUM [Concomitant]
     Active Substance: LEUCOVORIN CALCIUM
     Indication: Linitis plastica

REACTIONS (6)
  - Pneumomediastinum [Fatal]
  - Idiopathic interstitial pneumonia [Fatal]
  - Subcutaneous emphysema [Fatal]
  - Pulmonary fibrosis [Fatal]
  - Pneumonia bacterial [Fatal]
  - Respiratory disorder [Fatal]
